FAERS Safety Report 10291913 (Version 2)
Quarter: 2014Q3

REPORT INFORMATION
  Report Type: Report from Study
  Country: BR (occurrence: BR)
  Receive Date: 20140710
  Receipt Date: 20140710
  Transmission Date: 20150326
  Serious: Yes (Hospitalization, Other)
  Sender: FDA-Public Use
  Company Number: BR-ABBVIE-10P-020-0687477-00

PATIENT
  Age: 61 Year
  Sex: Male
  Weight: 63 kg

DRUGS (1)
  1. HUMIRA [Suspect]
     Active Substance: ADALIMUMAB
     Indication: CROHN^S DISEASE
     Route: 058
     Dates: start: 20090624, end: 200908

REACTIONS (8)
  - Hepatic cyst [Unknown]
  - Anaemia [Recovering/Resolving]
  - Colitis [Recovered/Resolved with Sequelae]
  - Abscess [Recovered/Resolved]
  - Frequent bowel movements [Unknown]
  - Abdominal pain [Recovered/Resolved]
  - Colitis ulcerative [Recovered/Resolved with Sequelae]
  - Intestinal resection [Unknown]

NARRATIVE: CASE EVENT DATE: 200909
